FAERS Safety Report 20429977 (Version 1)
Quarter: 2022Q1

REPORT INFORMATION
  Report Type: Report from Study
  Country: FR (occurrence: FR)
  Receive Date: 20220204
  Receipt Date: 20220204
  Transmission Date: 20220423
  Serious: Yes (Hospitalization)
  Sender: FDA-Public Use
  Company Number: FR-SERVIER-S19004995

PATIENT

DRUGS (5)
  1. ONCASPAR [Suspect]
     Active Substance: PEGASPARGASE
     Indication: Acute lymphocytic leukaemia
     Dosage: 950 IU, ON D12 AND D26
     Route: 042
     Dates: start: 20190115, end: 20190129
  2. VINCRISTINE [Suspect]
     Active Substance: VINCRISTINE
     Indication: Acute lymphocytic leukaemia
     Dosage: 1.1 MG ON D8, 15, 22, 29 OF EACH CYCLE
     Route: 042
     Dates: start: 20190111, end: 20190201
  3. DEXAMETHASONE [Suspect]
     Active Substance: DEXAMETHASONE
     Indication: Acute lymphocytic leukaemia
     Dosage: 4.6 MG ON D8-29 OF EACH CYCLE
     Route: 048
     Dates: start: 20190111, end: 20190131
  4. METHOTREXATE [Concomitant]
     Active Substance: METHOTREXATE
     Indication: Acute lymphocytic leukaemia
     Dosage: 12 MG, ON D1, D13, D24
     Route: 037
     Dates: start: 20190107, end: 20190127
  5. TN UNSPECIFIED [Concomitant]
     Indication: Acute lymphocytic leukaemia
     Dosage: 47 MG, FROM D1 TO D7
     Route: 048
     Dates: start: 20190103, end: 20190110

REACTIONS (1)
  - Oedema [Recovered/Resolved]

NARRATIVE: CASE EVENT DATE: 20190204
